FAERS Safety Report 8421279-5 (Version None)
Quarter: 2012Q2

REPORT INFORMATION
  Report Type: 
  Country: None (occurrence: None)
  Receive Date: 20120323
  Receipt Date: 20110620
  Transmission Date: 20120825
  Serious: Yes (Other)
  Sender: FDA-Public Use
  Company Number: 163-21880-11022240

PATIENT
  Age: 66 Year
  Sex: Female

DRUGS (11)
  1. LEVOTHYROXINE SODIUM [Concomitant]
  2. AMBIEN [Concomitant]
  3. PRAVACHOL [Concomitant]
  4. LEXAPRO [Concomitant]
  5. PREDNISONE [Suspect]
     Indication: MYELOFIBROSIS
     Dosage: 15 MG, QOD
     Dates: start: 20110131
  6. NADOLOL [Concomitant]
  7. ATACAND [Concomitant]
  8. FAMOTIDINE [Concomitant]
  9. REVLIMID [Suspect]
     Indication: MYELOFIBROSIS
     Dosage: 10 MG, 1 IN 1 D, PO
     Route: 048
     Dates: start: 20110131
  10. VITAMIN B (VITAMIN B) [Concomitant]
  11. ZEGERID (OMEPRAZOLE) [Concomitant]

REACTIONS (3)
  - PYREXIA [None]
  - PRURITUS [None]
  - FULL BLOOD COUNT DECREASED [None]
